FAERS Safety Report 5739077-X (Version None)
Quarter: 2008Q2

REPORT INFORMATION
  Report Type: 
  Country: None (occurrence: None)
  Receive Date: 20080515
  Receipt Date: 20080512
  Transmission Date: 20081010
  Serious: Yes (Hospitalization)
  Sender: FDA-Public Use
  Company Number: GB-ASTRAZENECA-2008GB00895

PATIENT
  Age: 86 Year
  Sex: Female
  Weight: 58 kg

DRUGS (7)
  1. QUETIAPINE FUMARATE [Suspect]
     Indication: DELUSION
     Route: 048
     Dates: start: 20061017, end: 20080227
  2. QUETIAPINE FUMARATE [Suspect]
     Indication: SCHIZOPHRENIA
     Route: 048
     Dates: start: 20061017, end: 20080227
  3. ALFACALCIDOL [Concomitant]
     Route: 048
  4. FERROUS SULFATE TAB [Concomitant]
  5. FOLIC ACID [Concomitant]
  6. OMEPRAZOLE [Concomitant]
     Route: 048
  7. VITAMIN B COMPLEX CAP [Concomitant]
     Indication: ANAEMIA
     Route: 030

REACTIONS (1)
  - NEUTROPENIA [None]
